FAERS Safety Report 10047673 (Version 1)
Quarter: 2014Q1

REPORT INFORMATION
  Report Type: Spontaneous
  Country: CA (occurrence: CA)
  Receive Date: 20140331
  Receipt Date: 20140331
  Transmission Date: 20141002
  Serious: Yes (Hospitalization, Other)
  Sender: FDA-Public Use
  Company Number: CA-PFIZER INC-2014089021

PATIENT
  Sex: Female

DRUGS (1)
  1. CHAMPIX [Suspect]
     Indication: SMOKING CESSATION THERAPY
     Dosage: UNK
     Dates: start: 20121123, end: 20121203

REACTIONS (6)
  - Gastric ulcer haemorrhage [Recovered/Resolved with Sequelae]
  - Posterior reversible encephalopathy syndrome [Recovering/Resolving]
  - Blindness [Recovered/Resolved]
  - Grand mal convulsion [Recovered/Resolved]
  - Hallucination, visual [Not Recovered/Not Resolved]
  - Blood pressure increased [Recovered/Resolved]
